FAERS Safety Report 8901511 (Version 2)
Quarter: 2012Q4

REPORT INFORMATION
  Report Type: 
  Country: US (occurrence: US)
  Receive Date: 20121109
  Receipt Date: 20121129
  Transmission Date: 20130627
  Serious: No
  Sender: FDA-Public Use
  Company Number: US-BAYER-2012-117055

PATIENT
  Age: 36 Year
  Sex: Female

DRUGS (2)
  1. MIRENA [Suspect]
     Indication: CONTRACEPTION
     Dosage: 20 mcg/24hr, CONT
     Route: 015
     Dates: start: 20100930, end: 20121026
  2. TESTOBAY/TESTOFLOXACIN [Concomitant]
     Indication: URINARY TRACT INFECTION
     Dosage: 200 mg, BID
     Route: 048
     Dates: start: 20090512, end: 20090515

REACTIONS (4)
  - Menorrhagia [None]
  - Hypomenorrhoea [None]
  - Premenstrual syndrome [None]
  - Drug ineffective [None]
